FAERS Safety Report 25811052 (Version 2)
Quarter: 2025Q3

REPORT INFORMATION
  Report Type: Spontaneous
  Country: JP (occurrence: JP)
  Receive Date: 20250917
  Receipt Date: 20250928
  Transmission Date: 20251020
  Serious: Yes (Congenital Anomaly, Other)
  Sender: GLAXOSMITHKLINE
  Company Number: JP-GSKNCCC-Case-02581714_AE-102960

PATIENT

DRUGS (1)
  1. LAMICTAL [Suspect]
     Active Substance: LAMOTRIGINE
     Indication: Epilepsy
     Dosage: 200 MG, QD

REACTIONS (6)
  - Multiple congenital abnormalities [Unknown]
  - Ventricular septal defect [Unknown]
  - Hypospadias [Unknown]
  - Congenital skin dimples [Unknown]
  - Spina bifida [Unknown]
  - Foetal exposure during pregnancy [Unknown]
